FAERS Safety Report 16083243 (Version 1)
Quarter: 2019Q1

REPORT INFORMATION
  Report Type: Spontaneous
  Country: FR (occurrence: FR)
  Receive Date: 20190318
  Receipt Date: 20190318
  Transmission Date: 20190418
  Serious: Yes (Hospitalization, Other)
  Sender: FDA-Public Use
  Company Number: FR-SA-2006-00572

PATIENT
  Age: 82 Year
  Sex: Male

DRUGS (9)
  1. FLECAINE [Concomitant]
     Active Substance: FLECAINIDE
  2. JOSIR [Concomitant]
     Active Substance: TAMSULOSIN
  3. LOGIRENE [Concomitant]
  4. PENTOXIFYLLIN [Concomitant]
     Active Substance: PENTOXIFYLLINE
  5. PREVISCAN [FLUINDIONE] [Concomitant]
     Active Substance: FLUINDIONE
  6. OFLOCET [Suspect]
     Active Substance: OFLOXACIN
     Dosage: 400 MG, QD
     Route: 042
     Dates: start: 20060118, end: 20060208
  7. PARACETAMOL [Suspect]
     Active Substance: ACETAMINOPHEN
     Dosage: UNK
     Route: 042
     Dates: start: 20060116, end: 20060201
  8. IMMUCYST [Suspect]
     Active Substance: BACILLUS CALMETTE-GUERIN SUBSTRAIN CONNAUGHT LIVE ANTIGEN
     Indication: BLADDER CANCER
     Dosage: UNK
     Route: 043
     Dates: start: 20060111
  9. HYPERIUM [Concomitant]
     Active Substance: RILMENIDINE PHOSPHATE

REACTIONS (8)
  - Renal cyst [Unknown]
  - Chills [Unknown]
  - Pyrexia [Recovered/Resolved]
  - Disseminated Bacillus Calmette-Guerin infection [Unknown]
  - Blood alkaline phosphatase increased [Recovered/Resolved]
  - Leukopenia [Recovered/Resolved]
  - Alanine aminotransferase increased [Recovered/Resolved]
  - Neutropenia [Recovered/Resolved]

NARRATIVE: CASE EVENT DATE: 20060111
